FAERS Safety Report 4528979-8 (Version None)
Quarter: 2004Q4

REPORT INFORMATION
  Report Type: 
  Country: None (occurrence: None)
  Receive Date: 20041214
  Receipt Date: 20041203
  Transmission Date: 20050328
  Serious: Yes (Hospitalization)
  Sender: FDA-Public Use
  Company Number: 2004-0007815

PATIENT
  Age: 34 Year
  Sex: Male
  Weight: 75.8 kg

DRUGS (5)
  1. EMTRICITABINE (EMTRICITABINE) [Suspect]
     Indication: HIV INFECTION
     Dosage: 200 MG, 1 IN 48 HR, ORAL
     Route: 048
     Dates: start: 20041022
  2. TENOFOVIR DISOPROXIL FUMARATE (TENOFOVIR DISOPROXIL FUMARATE) [Suspect]
     Indication: HIV INFECTION
     Dosage: 300 MG, 1 IN 48 HR, ORAL
     Route: 048
     Dates: start: 20031119
  3. SQV (SQUINAVIR) [Suspect]
     Indication: HIV INFECTION
     Dates: start: 20030604
  4. RTV(RITONAVIR) [Suspect]
     Indication: HIV INFECTION
     Dates: start: 20030604
  5. LAMIVUDINE(LAMIVUDINE) [Suspect]
     Indication: HIV INFECTION
     Dates: start: 20031119, end: 20041021

REACTIONS (1)
  - GLOMERULONEPHRITIS FOCAL [None]
